FAERS Safety Report 23895494 (Version 1)
Quarter: 2024Q2

REPORT INFORMATION
  Report Type: Spontaneous
  Country: CN (occurrence: CN)
  Receive Date: 20240524
  Receipt Date: 20240524
  Transmission Date: 20240716
  Serious: Yes (Hospitalization, Other)
  Sender: FDA-Public Use
  Company Number: CN-SUN PHARMACEUTICAL INDUSTRIES LTD-2024R1-447627

PATIENT
  Age: 41 Year
  Sex: Female
  Weight: 64 kg

DRUGS (2)
  1. AMLODIPINE [Suspect]
     Active Substance: AMLODIPINE BESYLATE
     Indication: Hypertension
     Dosage: 5 MILLIGRAM, QD
     Route: 065
  2. TELMISARTAN [Suspect]
     Active Substance: TELMISARTAN
     Indication: Hypertension
     Dosage: 40 MILLIGRAM, QD
     Route: 065

REACTIONS (6)
  - Therapeutic response decreased [Unknown]
  - Hypokalaemia [Recovered/Resolved]
  - Cushing^s syndrome [Recovered/Resolved]
  - Hyperaldosteronism [Recovered/Resolved]
  - Sinus tachycardia [Recovered/Resolved]
  - Adenoma benign [Recovered/Resolved]
